FAERS Safety Report 6996940-X (Version None)
Quarter: 2010Q3

REPORT INFORMATION
  Report Type: 
  Country: None (occurrence: None)
  Receive Date: 20100918
  Receipt Date: 20090821
  Transmission Date: 20110219
  Serious: No
  Sender: FDA-Public Use
  Company Number: US-WYE-H10699709

PATIENT
  Age: 67 Year
  Sex: Female

DRUGS (4)
  1. EFFEXOR XR [Suspect]
     Route: 048
  2. DIGOXIN [Concomitant]
  3. FENTANYL CITRATE [Concomitant]
  4. METOPROLOL [Concomitant]

REACTIONS (1)
  - LABORATORY TEST ABNORMAL [None]
